FAERS Safety Report 9157752 (Version 3)
Quarter: 2013Q2

REPORT INFORMATION
  Report Type: Spontaneous
  Country: DE (occurrence: None)
  Receive Date: 20130212
  Receipt Date: 20130509
  Transmission Date: 20140414
  Serious: Yes (Hospitalization, Other)
  Sender: FDA-Public Use
  Company Number: AUR-APL-2013-01089

PATIENT
  Age: 22 Year
  Sex: Male
  Weight: 103 kg

DRUGS (3)
  1. RISPERIDONE [Suspect]
     Indication: PSYCHOTIC DISORDER
     Route: 048
     Dates: start: 20121121, end: 20121212
  2. CLOZAPIN (CLOZAPINE) (CLOZAPIN) [Concomitant]
  3. SERTRALINE (SERTRALINE) (SERTRALINE) [Concomitant]

REACTIONS (6)
  - Transient ischaemic attack [None]
  - Fibrin D dimer decreased [None]
  - Paresis [None]
  - Facial paresis [None]
  - Paresis [None]
  - Fibrin D dimer increased [None]
